FAERS Safety Report 6069271-2 (Version None)
Quarter: 2009Q1

REPORT INFORMATION
  Report Type: 
  Country: None (occurrence: None)
  Receive Date: 20090206
  Receipt Date: 20090204
  Transmission Date: 20090719
  Serious: Yes (Death)
  Sender: FDA-Public Use
  Company Number: JP-BAYER-200910361BYL

PATIENT
  Age: 87 Year
  Sex: Female

DRUGS (3)
  1. CIPROXAN-I.V. [Suspect]
     Indication: PNEUMONIA ASPIRATION
     Dosage: TOTAL DAILY DOSE: 600 MG  UNIT DOSE: 300 MG
     Route: 041
     Dates: start: 20090124
  2. PENTCILLIN [Concomitant]
     Indication: PNEUMONIA ASPIRATION
     Route: 041
  3. MINOPEN [Concomitant]
     Indication: PNEUMONIA ASPIRATION
     Route: 041

REACTIONS (3)
  - HEPATIC FUNCTION ABNORMAL [None]
  - LIVER DISORDER [None]
  - TRANSAMINASES INCREASED [None]
